FAERS Safety Report 9501463 (Version 2)
Quarter: 2013Q4

REPORT INFORMATION
  Report Type: Spontaneous
  Country: JP (occurrence: JP)
  Receive Date: 20130905
  Receipt Date: 20131002
  Transmission Date: 20140711
  Serious: Yes (Hospitalization)
  Sender: FDA-Public Use
  Company Number: JP-GLAXOSMITHKLINE-B0919649A

PATIENT
  Age: 89 Year
  Sex: Male
  Weight: 53 kg

DRUGS (2)
  1. VALTREX [Suspect]
     Indication: HERPES ZOSTER
     Dosage: 1000MG THREE TIMES PER DAY
     Route: 048
     Dates: start: 20130823, end: 20130828
  2. MEMARY [Concomitant]
     Indication: DEMENTIA
     Route: 048
     Dates: start: 201307

REACTIONS (5)
  - Toxic encephalopathy [Unknown]
  - Renal disorder [Recovering/Resolving]
  - Ataxia [Recovering/Resolving]
  - Gait disturbance [Unknown]
  - Dysarthria [Unknown]
